FAERS Safety Report 9013970 (Version 2)
Quarter: 2013Q1

REPORT INFORMATION
  Report Type: Spontaneous
  Country: FR (occurrence: FR)
  Receive Date: 20130115
  Receipt Date: 20130124
  Transmission Date: 20140127
  Serious: Yes (Other)
  Sender: FDA-Public Use
  Company Number: FR-PFIZER INC-2013014413

PATIENT
  Age: 25 Year
  Sex: Female

DRUGS (4)
  1. IBUPROFEN [Suspect]
     Indication: NECK PAIN
     Dosage: UNK
  2. IBUPROFEN [Suspect]
     Indication: TENSION HEADACHE
  3. PARACETAMOL [Concomitant]
     Indication: NECK PAIN
     Dosage: UNK
  4. PARACETAMOL [Concomitant]
     Indication: TENSION HEADACHE

REACTIONS (1)
  - Meningitis aseptic [Recovered/Resolved]
